FAERS Safety Report 11753894 (Version 1)
Quarter: 2015Q4

REPORT INFORMATION
  Report Type: Report from Study
  Country: US (occurrence: US)
  Receive Date: 20151119
  Receipt Date: 20151119
  Transmission Date: 20160304
  Serious: Yes (Death)
  Sender: FDA-Public Use
  Company Number: US-ASTRAZENECA-2015SF10566

PATIENT
  Sex: Female

DRUGS (13)
  1. LORATADINE. [Concomitant]
     Active Substance: LORATADINE
  2. ASPIRIN. [Concomitant]
     Active Substance: ASPIRIN
  3. METOCLOPRAMIDE. [Concomitant]
     Active Substance: METOCLOPRAMIDE
  4. GABAPENTIN. [Concomitant]
     Active Substance: GABAPENTIN
  5. CLOPIDOGREL [Concomitant]
     Active Substance: CLOPIDOGREL BISULFATE
  6. VITAMIN D [Concomitant]
     Active Substance: CHOLECALCIFEROL
  7. SIMVASTATIN. [Concomitant]
     Active Substance: SIMVASTATIN
  8. LEVOTHYROXINE. [Concomitant]
     Active Substance: LEVOTHYROXINE
  9. PANTOPRAZOLE [Concomitant]
     Active Substance: PANTOPRAZOLE SODIUM
  10. IRESSA [Suspect]
     Active Substance: GEFITINIB
     Indication: LUNG CARCINOMA CELL TYPE UNSPECIFIED STAGE 0
     Route: 048
  11. METOPROLOL [Suspect]
     Active Substance: METOPROLOL
     Route: 048
  12. IRON [Concomitant]
     Active Substance: IRON
  13. FLUTICASONE [Concomitant]
     Active Substance: FLUTICASONE\FLUTICASONE PROPIONATE

REACTIONS (1)
  - Death [Fatal]
